FAERS Safety Report 6391622-X (Version None)
Quarter: 2009Q4

REPORT INFORMATION
  Report Type: 
  Country: None (occurrence: None)
  Receive Date: 20091007
  Receipt Date: 20090814
  Transmission Date: 20100525
  Serious: No
  Sender: FDA-Public Use
  Company Number: A0797106A

PATIENT
  Age: 65 Year
  Sex: Female

DRUGS (10)
  1. ADVAIR DISKUS 100/50 [Suspect]
     Indication: LUNG DISORDER
     Dosage: 2PUFF TWICE PER DAY
     Route: 055
     Dates: start: 20090708
  2. CYTOMEL [Concomitant]
  3. CLINDAMYCIN [Concomitant]
  4. PREDNISONE [Concomitant]
  5. DILAUDID [Concomitant]
  6. FIORINAL #3 [Concomitant]
  7. PAIN MEDICATION [Concomitant]
  8. SYNTHROID [Concomitant]
  9. METFORMIN [Concomitant]
  10. TEMAZEPAM [Concomitant]

REACTIONS (3)
  - DRUG INEFFECTIVE [None]
  - DYSPNOEA [None]
  - PRODUCT QUALITY ISSUE [None]
